FAERS Safety Report 22977425 (Version 2)
Quarter: 2023Q4

REPORT INFORMATION
  Report Type: Spontaneous
  Country: US (occurrence: US)
  Receive Date: 20230925
  Receipt Date: 20231211
  Transmission Date: 20240110
  Serious: No
  Sender: FDA-Public Use
  Company Number: US-GSK-US2023AMR128096

PATIENT
  Sex: Female
  Weight: 56.7 kg

DRUGS (1)
  1. BENLYSTA [Suspect]
     Active Substance: BELIMUMAB
     Indication: Systemic lupus erythematosus
     Dosage: 120 MG, Q4W INFUSE 10 MG/KG (567 MG

REACTIONS (2)
  - Nausea [Unknown]
  - Drug ineffective [Unknown]
